FAERS Safety Report 16236027 (Version 3)
Quarter: 2019Q2

REPORT INFORMATION
  Report Type: Spontaneous
  Country: US (occurrence: US)
  Receive Date: 20190425
  Receipt Date: 20190607
  Transmission Date: 20190711
  Serious: Yes (Death, Hospitalization)
  Sender: FDA-Public Use
  Company Number: US-UNITED THERAPEUTICS-UNT-2019-006834

PATIENT
  Age: 79 Year
  Sex: Female
  Weight: 59.41 kg

DRUGS (3)
  1. REMODULIN [Suspect]
     Active Substance: TREPROSTINIL
     Indication: PULMONARY ARTERIAL HYPERTENSION
     Dosage: 0.022 ?G/KG, CONTINUING
     Route: 041
     Dates: start: 20180320
  2. REMODULIN [Suspect]
     Active Substance: TREPROSTINIL
     Dosage: UNK UNK, CONTINUING
     Route: 041
  3. REMODULIN [Suspect]
     Active Substance: TREPROSTINIL
     Dosage: 0.03 ?G/KG, CONTINUING
     Route: 041

REACTIONS (5)
  - Dyspnoea [Unknown]
  - Death [Fatal]
  - Pulmonary arterial hypertension [Unknown]
  - Fibrosis [Unknown]
  - Asthenia [Unknown]

NARRATIVE: CASE EVENT DATE: 20190318
